FAERS Safety Report 4807568-1 (Version None)
Quarter: 2005Q4

REPORT INFORMATION
  Report Type: 
  Country: None (occurrence: None)
  Receive Date: 20051024
  Receipt Date: 20051011
  Transmission Date: 20060501
  Serious: Yes (Hospitalization)
  Sender: FDA-Public Use
  Company Number: HU-ROCHE-420645

PATIENT
  Age: 34 Year
  Sex: Male
  Weight: 94 kg

DRUGS (1)
  1. XENICAL [Suspect]
     Indication: OBESITY
     Dosage: FREQUENCY OF DOSING NOT REPORTED.
     Route: 048
     Dates: start: 20050820, end: 20050929

REACTIONS (2)
  - COAGULOPATHY [None]
  - PLATELET COUNT DECREASED [None]
